FAERS Safety Report 9128536 (Version 1)
Quarter: 2013Q1

REPORT INFORMATION
  Report Type: Spontaneous
  Country: US (occurrence: US)
  Receive Date: 20130228
  Receipt Date: 20130228
  Transmission Date: 20140127
  Serious: No
  Sender: FDA-Public Use
  Company Number: US-GLAXOSMITHKLINE-A1003415A

PATIENT
  Age: 62 Year
  Sex: Male

DRUGS (2)
  1. SUMATRIPTAN [Suspect]
     Dosage: 6MG UNKNOWN
     Route: 042
  2. DEVICE [Suspect]
     Route: 042

REACTIONS (3)
  - Underdose [Unknown]
  - Device leakage [Unknown]
  - Product quality issue [Unknown]
